FAERS Safety Report 17818716 (Version 2)
Quarter: 2021Q2

REPORT INFORMATION
  Report Type: Spontaneous
  Country: US (occurrence: US)
  Receive Date: 20200522
  Receipt Date: 20210610
  Transmission Date: 20210716
  Serious: Yes (Other)
  Sender: FDA-Public Use
  Company Number: US-COLLEGIUM PHARMACEUTICAL, INC.-2020CGM00091

PATIENT
  Sex: Female
  Weight: 81.63 kg

DRUGS (6)
  1. UNKNOWN PAIN MEDICATION [Suspect]
     Active Substance: UNSPECIFIED INGREDIENT
     Indication: PAIN
     Dosage: UNK
     Dates: start: 2018, end: 2018
  2. XTAMPZA ER [Suspect]
     Active Substance: OXYCODONE
     Dosage: 27 MG, 2X/DAY
     Route: 048
     Dates: start: 2018
  3. XANAX [Concomitant]
     Active Substance: ALPRAZOLAM
     Dosage: UNK, AS NEEDED
  4. VITAMIN D [Concomitant]
     Active Substance: VITAMIN D NOS
     Dosage: 50000 IU, 1X/WEEK
  5. XTAMPZA ER [Suspect]
     Active Substance: OXYCODONE
     Indication: PAIN
     Dosage: 60 MG
     Route: 048
  6. COMPAZINE [Concomitant]
     Active Substance: PROCHLORPERAZINE MALEATE
     Dosage: UNK, AS NEEDED

REACTIONS (12)
  - Musculoskeletal disorder [Recovered/Resolved]
  - Therapeutic product effect incomplete [Not Recovered/Not Resolved]
  - Feeling abnormal [Unknown]
  - Pain [Not Recovered/Not Resolved]
  - Blood potassium decreased [Recovered/Resolved]
  - Asthenia [Recovered/Resolved]
  - Withdrawal syndrome [Recovered/Resolved]
  - Colitis [Recovered/Resolved]
  - Decreased activity [Not Recovered/Not Resolved]
  - Vomiting [Recovered/Resolved]
  - Vitamin D decreased [Unknown]
  - Weight increased [Unknown]

NARRATIVE: CASE EVENT DATE: 2018
